FAERS Safety Report 8574051-X (Version None)
Quarter: 2012Q3

REPORT INFORMATION
  Report Type: 
  Country: None (occurrence: None)
  Receive Date: 20120806
  Receipt Date: 20110303
  Transmission Date: 20120928
  Serious: Yes (Death, Other)
  Sender: FDA-Public Use
  Company Number: DE-CELGENEUS-062-21880-12060220

PATIENT
  Age: 65 Year
  Sex: Female
  Weight: 62 kg

DRUGS (10)
  1. FILGRASTIM [Concomitant]
     Route: 065
     Dates: start: 20091019, end: 20091023
  2. LEVOFLOXACIN [Concomitant]
     Route: 065
  3. LEVOFLOXACIN [Concomitant]
     Dosage: 500 MILLIGRAM
     Route: 065
  4. FILGRASTIM [Concomitant]
     Route: 065
     Dates: start: 20091104, end: 20091108
  5. REVLIMID [Suspect]
     Indication: MYELOMA RECURRENCE
     Route: 048
     Dates: start: 20091001, end: 20091021
  6. FILGRASTIM [Concomitant]
     Route: 065
     Dates: start: 20091026, end: 20091030
  7. FILGRASTIM [Concomitant]
     Route: 065
     Dates: start: 20091109
  8. RIBODRONAT [Concomitant]
     Route: 065
     Dates: start: 20091016
  9. HEPARIN [Concomitant]
     Indication: ANTICOAGULANT THERAPY
     Route: 065
  10. DEXAMETHASONE [Suspect]
     Indication: MYELOMA RECURRENCE
     Route: 065
     Dates: start: 20091001, end: 20091021

REACTIONS (11)
  - RASH [None]
  - PAIN [None]
  - ANAEMIA [None]
  - HYPERSENSITIVITY [None]
  - MULTIPLE MYELOMA [None]
  - LEUKOPENIA [None]
  - CONSTIPATION [None]
  - THROMBOCYTOPENIA [None]
  - FATIGUE [None]
  - GRANULOCYTOPENIA [None]
  - PYREXIA [None]
